FAERS Safety Report 12384759 (Version 1)
Quarter: 2016Q2

REPORT INFORMATION
  Report Type: Spontaneous
  Country: US (occurrence: None)
  Receive Date: 20160518
  Receipt Date: 20160518
  Transmission Date: 20160815
  Serious: Yes (Hospitalization)
  Sender: FDA-Public Use
  Company Number: None

PATIENT
  Age: 67 Year
  Sex: Male
  Weight: 70.9 kg

DRUGS (1)
  1. GABAPENTIN. [Suspect]
     Active Substance: GABAPENTIN
     Dosage: 12/14/2015 THRU 01/12/2015
     Route: 048
     Dates: start: 20151214

REACTIONS (5)
  - Dizziness [None]
  - Urticaria [None]
  - Pruritus [None]
  - Speech disorder [None]
  - Rash [None]

NARRATIVE: CASE EVENT DATE: 20160219
